FAERS Safety Report 17982985 (Version 2)
Quarter: 2020Q3

REPORT INFORMATION
  Report Type: Spontaneous
  Country: US (occurrence: US)
  Receive Date: 20200706
  Receipt Date: 20200715
  Transmission Date: 20201103
  Serious: No
  Sender: FDA-Public Use
  Company Number: US-PFIZER INC-2020256736

PATIENT
  Age: 64 Year
  Sex: Female

DRUGS (4)
  1. SIMVASTATIN. [Suspect]
     Active Substance: SIMVASTATIN
     Dosage: 10 MG
  2. ZOCOR [Suspect]
     Active Substance: SIMVASTATIN
     Dosage: 10 MG
  3. ATORVASTATIN CALCIUM. [Suspect]
     Active Substance: ATORVASTATIN CALCIUM
     Dosage: 10 MG
  4. LOVASTATIN. [Suspect]
     Active Substance: LOVASTATIN
     Dosage: 10 MG

REACTIONS (2)
  - Myalgia [Unknown]
  - Drug ineffective [Unknown]
